FAERS Safety Report 6387414-8 (Version None)
Quarter: 2009Q3

REPORT INFORMATION
  Report Type: 
  Country: None (occurrence: None)
  Receive Date: 20090930
  Receipt Date: 20090919
  Transmission Date: 20100115
  Serious: Yes (Hospitalization)
  Sender: FDA-Public Use
  Company Number: 231043J09USA

PATIENT
  Age: 29 Year
  Sex: Male

DRUGS (2)
  1. REBIF [Suspect]
     Indication: MULTIPLE SCLEROSIS
     Dosage: 44 MCG, 3 IN 1 WEEKS, SUBCUTANEOUS
     Route: 058
     Dates: start: 20030505
  2. SOLU-MEDROL [Suspect]
     Indication: MULTIPLE SCLEROSIS

REACTIONS (6)
  - ARTHRALGIA [None]
  - BONE DISORDER [None]
  - GAIT DISTURBANCE [None]
  - INJECTION SITE IRRITATION [None]
  - INJECTION SITE PAIN [None]
  - PAIN IN EXTREMITY [None]
